FAERS Safety Report 7376034-4 (Version None)
Quarter: 2011Q1

REPORT INFORMATION
  Report Type: 
  Country: None (occurrence: None)
  Receive Date: 20110325
  Receipt Date: 20110321
  Transmission Date: 20110831
  Serious: Yes (Hospitalization)
  Sender: FDA-Public Use
  Company Number: FR-MERCK-1103FRA00121

PATIENT
  Age: 67 Year
  Sex: Female

DRUGS (9)
  1. INSULIN [Concomitant]
     Route: 065
  2. AMLODIPINE BESYLATE [Concomitant]
     Route: 065
  3. REPAGLINIDE [Concomitant]
     Route: 065
  4. ASPIRIN LYSINE [Concomitant]
     Route: 065
  5. PANTOPRAZOLE SODIUM [Concomitant]
     Route: 065
  6. CIPROFLOXACIN HYDROCHLORIDE [Suspect]
     Indication: OSTEITIS
     Route: 048
     Dates: start: 20101206, end: 20110111
  7. HYDROCHLOROTHIAZIDE AND IRBESARTAN [Concomitant]
     Route: 048
  8. INVANZ [Suspect]
     Indication: OSTEITIS
     Route: 042
     Dates: start: 20101119, end: 20110111
  9. TIGECYCLINE [Concomitant]
     Route: 048
     Dates: start: 20101124, end: 20101206

REACTIONS (2)
  - RASH MACULO-PAPULAR [None]
  - EOSINOPHILIA [None]
